FAERS Safety Report 5037041-X (Version None)
Quarter: 2006Q2

REPORT INFORMATION
  Report Type: 
  Country: None (occurrence: None)
  Receive Date: 20060601
  Receipt Date: 20060301
  Transmission Date: 20061013
  Serious: Yes (Hospitalization, Other)
  Sender: FDA-Public Use
  Company Number: 2005155165

PATIENT
  Age: 48 Year
  Sex: Male
  Weight: 77.1115 kg

DRUGS (1)
  1. FELDENE [Suspect]
     Indication: ARTHRALGIA
     Dates: start: 20030705, end: 20030711

REACTIONS (1)
  - STEVENS-JOHNSON SYNDROME [None]
